FAERS Safety Report 12011623 (Version 1)
Quarter: 2016Q1

REPORT INFORMATION
  Report Type: Report from Study
  Country: US (occurrence: US)
  Receive Date: 20160205
  Receipt Date: 20160205
  Transmission Date: 20160526
  Serious: No
  Sender: FDA-Public Use
  Company Number: US-ABBVIE-15K-163-1451565-00

PATIENT
  Age: 43 Year
  Sex: Female

DRUGS (3)
  1. HUMIRA [Suspect]
     Active Substance: ADALIMUMAB
     Indication: RHEUMATOID ARTHRITIS
     Route: 065
     Dates: start: 20150721
  2. GABAPENTIN. [Suspect]
     Active Substance: GABAPENTIN
     Indication: FIBROMYALGIA
     Route: 065
     Dates: start: 20150730
  3. GABAPENTIN. [Suspect]
     Active Substance: GABAPENTIN
     Dosage: TAPERING UP DOSE
     Route: 065
     Dates: start: 201508, end: 201508

REACTIONS (10)
  - Hypoaesthesia [Unknown]
  - Limb injury [Unknown]
  - Drug hypersensitivity [Recovered/Resolved]
  - Injection site pain [Recovered/Resolved]
  - Paraesthesia oral [Unknown]
  - Paraesthesia [Unknown]
  - Ligament sprain [Recovering/Resolving]
  - Hypoaesthesia oral [Unknown]
  - Drug effect incomplete [Not Recovered/Not Resolved]
  - Contusion [Unknown]

NARRATIVE: CASE EVENT DATE: 20150721
